FAERS Safety Report 4359459-0 (Version None)
Quarter: 2004Q2

REPORT INFORMATION
  Report Type: 
  Country: None (occurrence: None)
  Receive Date: 20040514
  Receipt Date: 20040514
  Transmission Date: 20050107
  Serious: Yes (Hospitalization)
  Sender: FDA-Public Use
  Company Number: None

PATIENT
  Age: 58 Year
  Sex: Male

DRUGS (9)
  1. IBUPROFEN [Suspect]
     Indication: PAIN
     Dosage: 800 MG TID
     Dates: start: 19950701
  2. FUROSEMIDE [Concomitant]
  3. ISOSORBIDE [Concomitant]
  4. ZOCOR [Concomitant]
  5. TEQUIN [Concomitant]
  6. METHYLPREDNISOLONE [Concomitant]
  7. FOSINOPRIL SODIUM [Concomitant]
  8. LORATADINE [Concomitant]
  9. METOCLOPRAMIDE [Concomitant]

REACTIONS (1)
  - GASTROINTESTINAL HAEMORRHAGE [None]
